FAERS Safety Report 17855124 (Version 3)
Quarter: 2020Q3

REPORT INFORMATION
  Report Type: Spontaneous
  Country: US (occurrence: US)
  Receive Date: 20200603
  Receipt Date: 20200908
  Transmission Date: 20201103
  Serious: Yes (Death)
  Sender: FDA-Public Use
  Company Number: US-ASTRAZENECA-2020SE70771

PATIENT
  Age: 22822 Day
  Sex: Male
  Weight: 133.8 kg

DRUGS (7)
  1. BYETTA [Suspect]
     Active Substance: EXENATIDE
     Dosage: 10MCG
     Route: 065
     Dates: start: 201307, end: 201308
  2. METFORMIN HCL [Concomitant]
     Active Substance: METFORMIN HYDROCHLORIDE
  3. BYETTA [Suspect]
     Active Substance: EXENATIDE
     Route: 065
     Dates: start: 201307, end: 201308
  4. XIGIDUO [Concomitant]
  5. VICTOZA [Suspect]
     Active Substance: LIRAGLUTIDE
     Route: 065
     Dates: start: 201410, end: 201801
  6. NOVOLOG [Concomitant]
     Active Substance: INSULIN ASPART
  7. VICTOZA [Suspect]
     Active Substance: LIRAGLUTIDE
     Route: 065
     Dates: start: 201410, end: 201801

REACTIONS (2)
  - Pancreatic carcinoma [Fatal]
  - Pancreatic neuroendocrine tumour [Fatal]

NARRATIVE: CASE EVENT DATE: 20180227
